FAERS Safety Report 20421183 (Version 1)
Quarter: 2022Q1

REPORT INFORMATION
  Report Type: Report from Study
  Country: FR (occurrence: FR)
  Receive Date: 20220203
  Receipt Date: 20220203
  Transmission Date: 20220423
  Serious: Yes (Hospitalization, Other)
  Sender: FDA-Public Use
  Company Number: FR-TAKEDA-2022TUS005691

PATIENT
  Age: 54 Year
  Sex: Female

DRUGS (28)
  1. TEDUGLUTIDE [Suspect]
     Active Substance: TEDUGLUTIDE
     Indication: Short-bowel syndrome
     Dosage: 2.6 MILLIGRAM
     Route: 065
     Dates: start: 20180313, end: 201907
  2. TEDUGLUTIDE [Suspect]
     Active Substance: TEDUGLUTIDE
     Indication: Short-bowel syndrome
     Dosage: 2.6 MILLIGRAM
     Route: 065
     Dates: start: 20180313, end: 201907
  3. TEDUGLUTIDE [Suspect]
     Active Substance: TEDUGLUTIDE
     Indication: Short-bowel syndrome
     Dosage: 2.6 MILLIGRAM
     Route: 065
     Dates: start: 20180313, end: 201907
  4. TEDUGLUTIDE [Suspect]
     Active Substance: TEDUGLUTIDE
     Indication: Short-bowel syndrome
     Dosage: 2.6 MILLIGRAM
     Route: 065
     Dates: start: 20180313, end: 201907
  5. TEDUGLUTIDE [Suspect]
     Active Substance: TEDUGLUTIDE
     Dosage: 2.4 MILLIGRAM
     Route: 065
     Dates: start: 201907, end: 201911
  6. TEDUGLUTIDE [Suspect]
     Active Substance: TEDUGLUTIDE
     Dosage: 2.4 MILLIGRAM
     Route: 065
     Dates: start: 201907, end: 201911
  7. TEDUGLUTIDE [Suspect]
     Active Substance: TEDUGLUTIDE
     Dosage: 2.4 MILLIGRAM
     Route: 065
     Dates: start: 201907, end: 201911
  8. TEDUGLUTIDE [Suspect]
     Active Substance: TEDUGLUTIDE
     Dosage: 2.4 MILLIGRAM
     Route: 065
     Dates: start: 201907, end: 201911
  9. TEDUGLUTIDE [Suspect]
     Active Substance: TEDUGLUTIDE
     Dosage: 2.4 MILLIGRAM
     Route: 065
     Dates: start: 20191104, end: 201912
  10. TEDUGLUTIDE [Suspect]
     Active Substance: TEDUGLUTIDE
     Dosage: 2.4 MILLIGRAM
     Route: 065
     Dates: start: 20191104, end: 201912
  11. TEDUGLUTIDE [Suspect]
     Active Substance: TEDUGLUTIDE
     Dosage: 2.4 MILLIGRAM
     Route: 065
     Dates: start: 20191104, end: 201912
  12. TEDUGLUTIDE [Suspect]
     Active Substance: TEDUGLUTIDE
     Dosage: 2.4 MILLIGRAM
     Route: 065
     Dates: start: 20191104, end: 201912
  13. TEDUGLUTIDE [Suspect]
     Active Substance: TEDUGLUTIDE
     Dosage: 2.6 MILLIGRAM
     Route: 065
     Dates: start: 201912, end: 20200727
  14. TEDUGLUTIDE [Suspect]
     Active Substance: TEDUGLUTIDE
     Dosage: 2.6 MILLIGRAM
     Route: 065
     Dates: start: 201912, end: 20200727
  15. TEDUGLUTIDE [Suspect]
     Active Substance: TEDUGLUTIDE
     Dosage: 2.6 MILLIGRAM
     Route: 065
     Dates: start: 201912, end: 20200727
  16. TEDUGLUTIDE [Suspect]
     Active Substance: TEDUGLUTIDE
     Dosage: 2.6 MILLIGRAM
     Route: 065
     Dates: start: 201912, end: 20200727
  17. TEDUGLUTIDE [Suspect]
     Active Substance: TEDUGLUTIDE
     Dosage: 2.4 MILLIGRAM
     Route: 065
     Dates: start: 20200728, end: 20210315
  18. TEDUGLUTIDE [Suspect]
     Active Substance: TEDUGLUTIDE
     Dosage: 2.4 MILLIGRAM
     Route: 065
     Dates: start: 20200728, end: 20210315
  19. TEDUGLUTIDE [Suspect]
     Active Substance: TEDUGLUTIDE
     Dosage: 2.4 MILLIGRAM
     Route: 065
     Dates: start: 20200728, end: 20210315
  20. TEDUGLUTIDE [Suspect]
     Active Substance: TEDUGLUTIDE
     Dosage: 2.4 MILLIGRAM
     Route: 065
     Dates: start: 20200728, end: 20210315
  21. TEDUGLUTIDE [Suspect]
     Active Substance: TEDUGLUTIDE
     Dosage: 2.6 MILLIGRAM
     Route: 065
     Dates: start: 20210316
  22. TEDUGLUTIDE [Suspect]
     Active Substance: TEDUGLUTIDE
     Dosage: 2.6 MILLIGRAM
     Route: 065
     Dates: start: 20210316
  23. TEDUGLUTIDE [Suspect]
     Active Substance: TEDUGLUTIDE
     Dosage: 2.6 MILLIGRAM
     Route: 065
     Dates: start: 20210316
  24. TEDUGLUTIDE [Suspect]
     Active Substance: TEDUGLUTIDE
     Dosage: 2.6 MILLIGRAM
     Route: 065
     Dates: start: 20210316
  25. INNOHEP [Concomitant]
     Active Substance: TINZAPARIN SODIUM
     Indication: Device related thrombosis
     Dosage: 0.45 MILLILITER, QD
     Route: 058
     Dates: start: 202110
  26. CLINDAMYCIN [Concomitant]
     Active Substance: CLINDAMYCIN
     Indication: Vascular device infection
     Dosage: 600 MILLIGRAM, TID
     Route: 048
     Dates: start: 202108, end: 20210817
  27. CEFAZOLIN SODIUM [Concomitant]
     Active Substance: CEFAZOLIN SODIUM
     Indication: Vascular device infection
     Dosage: 1 DOSAGE FORM, QD
     Route: 042
     Dates: start: 202108, end: 202108
  28. VANCOMYCIN [Concomitant]
     Active Substance: VANCOMYCIN
     Indication: Vascular device infection
     Dosage: 1 DOSAGE FORM
     Route: 042
     Dates: start: 202108, end: 202108

REACTIONS (1)
  - Device related thrombosis [Recovered/Resolved]

NARRATIVE: CASE EVENT DATE: 20211001
